FAERS Safety Report 4489413-X (Version None)
Quarter: 2004Q4

REPORT INFORMATION
  Report Type: 
  Country: None (occurrence: None)
  Receive Date: 20041025
  Receipt Date: 20041012
  Transmission Date: 20050328
  Serious: Yes (Hospitalization, Other)
  Sender: FDA-Public Use
  Company Number: 2004076997

PATIENT
  Age: 17 Year
  Sex: Male
  Weight: 56.6996 kg

DRUGS (2)
  1. UNISOM [Suspect]
     Indication: OVERDOSE
     Dosage: 20-24 GELS ONCE, ORAL
     Route: 048
     Dates: start: 20041005, end: 20041005
  2. CANNABIS (CANNABIS) [Suspect]

REACTIONS (7)
  - DRUG ABUSER [None]
  - DRUG SCREEN POSITIVE [None]
  - HALLUCINATION [None]
  - HEADACHE [None]
  - MOOD ALTERED [None]
  - PERSONALITY CHANGE DUE TO A GENERAL MEDICAL CONDITION [None]
  - PSYCHOTIC DISORDER [None]
